FAERS Safety Report 21732073 (Version 2)
Quarter: 2023Q4

REPORT INFORMATION
  Report Type: Report from Study
  Country: US (occurrence: US)
  Receive Date: 20221215
  Receipt Date: 20231229
  Transmission Date: 20240110
  Serious: Yes (Death, Other)
  Sender: FDA-Public Use
  Company Number: US-ACADIA PHARMACEUTICALS INC.-ACA-2022-PIM-004046

PATIENT
  Age: 85 Year
  Sex: Female

DRUGS (11)
  1. NUPLAZID [Suspect]
     Active Substance: PIMAVANSERIN TARTRATE
     Indication: Parkinson^s disease
     Dosage: 34 MILLIGRAM, QD, EVERY EVENING
     Route: 048
     Dates: start: 20221118
  2. ELIQUIS [Concomitant]
     Active Substance: APIXABAN
     Dosage: 5 MILLIGRAM, BID
     Route: 048
  3. CLONAZEPAM [Concomitant]
     Active Substance: CLONAZEPAM
  4. MIRTAZAPINE [Concomitant]
     Active Substance: MIRTAZAPINE
  5. LEVOTHYROXINE [Concomitant]
     Active Substance: LEVOTHYROXINE
  6. HALDOL [Concomitant]
     Active Substance: HALOPERIDOL
     Indication: Agitation
     Dosage: 1 MILLIGRAM, QID AS NEEDED
     Route: 048
  7. TYLENOL [Concomitant]
     Active Substance: ACETAMINOPHEN
     Indication: Pain
     Dosage: 500 MILLIGRAM EVERY 6 HOURS AS NEEDED
     Route: 048
  8. KLONOPIN [Concomitant]
     Active Substance: CLONAZEPAM
     Dosage: 0.5 MG ONE TABLET ORAL 4 TIMES AS NEEDED
  9. SYNTHROID [Concomitant]
     Active Substance: LEVOTHYROXINE SODIUM
     Dosage: 75 MICROGRAM (1 AND HALF TABLETS QD DAILY)
     Route: 048
  10. MIRALAX [Concomitant]
     Active Substance: POLYETHYLENE GLYCOL 3350
     Dosage: 17 GRAM, QD
     Route: 048
  11. HALDOL DECANOATE [Concomitant]
     Active Substance: HALOPERIDOL DECANOATE

REACTIONS (13)
  - Death [Fatal]
  - Hypersomnia [Recovered/Resolved]
  - Respiration abnormal [Recovered/Resolved]
  - Dementia [Recovered/Resolved]
  - Tremor [Recovered/Resolved]
  - Anxiety [Unknown]
  - Decreased appetite [Unknown]
  - Dysuria [Unknown]
  - Urinary incontinence [Unknown]
  - Delusion [Unknown]
  - Confusional state [Recovered/Resolved]
  - Peripheral swelling [Unknown]
  - Constipation [Unknown]

NARRATIVE: CASE EVENT DATE: 20221101
